FAERS Safety Report 9900971 (Version 1)
Quarter: 2014Q1

REPORT INFORMATION
  Report Type: Report from Study
  Country: US (occurrence: US)
  Receive Date: 20140217
  Receipt Date: 20140217
  Transmission Date: 20141002
  Serious: No
  Sender: FDA-Public Use
  Company Number: US-ABBVIE-13P-163-1070325-00

PATIENT
  Age: 55 Year
  Sex: Male
  Weight: 88.53 kg

DRUGS (3)
  1. SIMCOR 1000/40 [Suspect]
     Indication: BLOOD CHOLESTEROL INCREASED
     Dosage: 1000MG/40 MG
  2. SIMCOR 1000/40 [Suspect]
     Dosage: 1000/40MG AT BEDTIME
  3. PAROXETINE [Concomitant]
     Indication: PRODUCT USED FOR UNKNOWN INDICATION

REACTIONS (4)
  - Cardiac disorder [Unknown]
  - Flushing [Recovered/Resolved]
  - Feeling hot [Recovered/Resolved]
  - Back pain [Unknown]
